FAERS Safety Report 4338418-8 (Version None)
Quarter: 2004Q2

REPORT INFORMATION
  Report Type: 
  Country: None (occurrence: None)
  Receive Date: 20040407
  Receipt Date: 20040329
  Transmission Date: 20050107
  Serious: Yes (Hospitalization)
  Sender: FDA-Public Use
  Company Number: EMADSS2003001340

PATIENT
  Age: 65 Year
  Sex: Female

DRUGS (9)
  1. REMICADE [Suspect]
     Indication: RHEUMATOID ARTHRITIS
     Dosage: 3 MG/KG, 1 IN 1 AS NECESSARY, INTRAVENOUS
     Route: 042
     Dates: start: 20010313, end: 20010313
  2. REMICADE [Suspect]
     Indication: RHEUMATOID ARTHRITIS
     Dosage: 3 MG/KG, 1 IN 1 AS NECESSARY, INTRAVENOUS
     Route: 042
     Dates: start: 20030108, end: 20030108
  3. ... [Suspect]
  4. METHOTREXATE [Concomitant]
  5. CORTICOSTEROID NOS (CORTICOSTEROID NOS) UNSPECIFIED [Concomitant]
  6. OMEPRAZOLE [Concomitant]
  7. ACFOL (FOLIC ACID) [Concomitant]
  8. NONSTEROIDAL ANTI-INFLAMMATORY AGENT NOS (NSAID'S) [Concomitant]
  9. RIFAMPICIN [Concomitant]

REACTIONS (6)
  - ASTHENIA [None]
  - LEUKOCYTURIA [None]
  - PLEURAL FIBROSIS [None]
  - PULMONARY TUBERCULOSIS [None]
  - PYREXIA [None]
  - RENAL TUBERCULOSIS [None]
